FAERS Safety Report 18049593 (Version 4)
Quarter: 2021Q2

REPORT INFORMATION
  Report Type: Spontaneous
  Country: US (occurrence: US)
  Receive Date: 20200721
  Receipt Date: 20210601
  Transmission Date: 20210717
  Serious: Yes (Hospitalization, Other)
  Sender: FDA-Public Use
  Company Number: US-GILEAD-2020-0482930

PATIENT
  Age: 26 Year
  Sex: Male
  Weight: 61.68 kg

DRUGS (54)
  1. NORVIR [Concomitant]
     Active Substance: RITONAVIR
  2. VIRACEPT [Concomitant]
     Active Substance: NELFINAVIR MESYLATE
  3. LIDOCAINE. [Concomitant]
     Active Substance: LIDOCAINE
  4. PROVENTIL [Concomitant]
     Active Substance: ALBUTEROL
  5. REGLAN [Concomitant]
     Active Substance: METOCLOPRAMIDE HYDROCHLORIDE
  6. TUMS [Concomitant]
     Active Substance: CALCIUM CARBONATE
  7. JULUCA [Concomitant]
     Active Substance: DOLUTEGRAVIR SODIUM\RILPIVIRINE HYDROCHLORIDE
  8. BENADRYL [Concomitant]
     Active Substance: DIPHENHYDRAMINE HYDROCHLORIDE
  9. AVELOX [Concomitant]
     Active Substance: MOXIFLOXACIN HYDROCHLORIDE
  10. AZITHROMYCIN ANHYDROUS. [Concomitant]
     Active Substance: AZITHROMYCIN ANHYDROUS
  11. LOPRESSOR [Concomitant]
     Active Substance: METOPROLOL TARTRATE
  12. FAMOTIDINE. [Concomitant]
     Active Substance: FAMOTIDINE
  13. OMNARIS [Concomitant]
     Active Substance: CICLESONIDE
  14. PROAMATINE [Concomitant]
     Active Substance: MIDODRINE HYDROCHLORIDE
  15. PREZISTA [Concomitant]
     Active Substance: DARUNAVIR ETHANOLATE
  16. REYATAZ [Concomitant]
     Active Substance: ATAZANAVIR SULFATE
  17. CALCIUM ANTACID [Concomitant]
     Active Substance: CALCIUM CARBONATE
  18. MIRALAX [Concomitant]
     Active Substance: POLYETHYLENE GLYCOL 3350
  19. MYCOSTATIN [Concomitant]
     Active Substance: NYSTATIN
  20. NIZORAL [Concomitant]
     Active Substance: KETOCONAZOLE
  21. ZOFRAN [Concomitant]
     Active Substance: ONDANSETRON HYDROCHLORIDE
  22. VIREAD [Suspect]
     Active Substance: TENOFOVIR DISOPROXIL FUMARATE
     Indication: HIV INFECTION
     Dosage: UNK
     Route: 048
     Dates: start: 201206, end: 201206
  23. PHOSLO [Concomitant]
     Active Substance: CALCIUM ACETATE
     Dosage: UNK
     Dates: start: 20140929, end: 20170803
  24. ATROVENT [Concomitant]
     Active Substance: IPRATROPIUM BROMIDE
  25. DIFLUCAN [Concomitant]
     Active Substance: FLUCONAZOLE
  26. NASONEX [Concomitant]
     Active Substance: MOMETASONE FUROATE
  27. ZITHROMAX [Concomitant]
     Active Substance: AZITHROMYCIN DIHYDRATE
  28. ALBUTEROL [SALBUTAMOL SULFATE] [Concomitant]
     Active Substance: ALBUTEROL SULFATE
  29. ISENTRESS [Concomitant]
     Active Substance: RALTEGRAVIR POTASSIUM
  30. ASPIRIN (E.C.) [Concomitant]
     Active Substance: ASPIRIN
  31. FLUCONAZOLE. [Concomitant]
     Active Substance: FLUCONAZOLE
  32. PROTONIX [OMEPRAZOLE] [Concomitant]
     Active Substance: OMEPRAZOLE
  33. QVAR [Concomitant]
     Active Substance: BECLOMETHASONE DIPROPIONATE
  34. POLYETHYLENE GLYCOL [MACROGOL] [Concomitant]
     Active Substance: POLYETHYLENE GLYCOLS
  35. MEPRON [Concomitant]
     Active Substance: ATOVAQUONE
  36. VISTARIL [Concomitant]
     Active Substance: HYDROXYZINE PAMOATE
  37. COMBIVIR [Concomitant]
     Active Substance: LAMIVUDINE\ZIDOVUDINE
  38. HYDROCORTISONE. [Concomitant]
     Active Substance: HYDROCORTISONE
  39. VENTOLIN HFA [Concomitant]
     Active Substance: ALBUTEROL SULFATE
  40. TRUVADA [Suspect]
     Active Substance: EMTRICITABINE\TENOFOVIR DISOPROXIL FUMARATE
     Indication: PROPHYLAXIS AGAINST HIV INFECTION
     Dosage: UNK
     Route: 065
  41. ZIAGEN [Concomitant]
     Active Substance: ABACAVIR SULFATE
  42. BIAXIN [Concomitant]
     Active Substance: CLARITHROMYCIN
  43. SINGULAIR [Concomitant]
     Active Substance: MONTELUKAST SODIUM
  44. SULFAMETHOXAZOLE [Concomitant]
     Active Substance: SULFAMETHOXAZOLE
  45. CARDIZEM [Concomitant]
     Active Substance: DILTIAZEM HYDROCHLORIDE
  46. EMLA [LIDOCAINE HYDROCHLORIDE;PRILOCAINE] [Concomitant]
  47. TRUVADA [Suspect]
     Active Substance: EMTRICITABINE\TENOFOVIR DISOPROXIL FUMARATE
     Indication: HIV INFECTION
     Dosage: UNK
     Route: 048
     Dates: start: 201210, end: 20130202
  48. ATRIPLA [Suspect]
     Active Substance: EFAVIRENZ\EMTRICITABINE\TENOFOVIR DISOPROXIL FUMARATE
     Indication: HIV INFECTION
     Dosage: UNK
     Route: 048
     Dates: start: 201206, end: 201210
  49. RENVELA [Concomitant]
     Active Substance: SEVELAMER CARBONATE
     Dosage: UNK
     Dates: start: 20130403, end: 20130918
  50. TIVICAY [Concomitant]
     Active Substance: DOLUTEGRAVIR SODIUM
  51. COL RITE STOOL SOFTENER [Concomitant]
  52. FOLIC ACID. [Concomitant]
     Active Substance: FOLIC ACID
  53. ADVAIR HFA [Concomitant]
     Active Substance: FLUTICASONE PROPIONATE\SALMETEROL XINAFOATE
  54. FLONASE [Concomitant]
     Active Substance: FLUTICASONE PROPIONATE

REACTIONS (16)
  - Anhedonia [Not Recovered/Not Resolved]
  - Peripheral swelling [Unknown]
  - Anxiety [Not Recovered/Not Resolved]
  - Osteoporosis [Not Recovered/Not Resolved]
  - Impaired work ability [Unknown]
  - Decreased activity [Not Recovered/Not Resolved]
  - Pain [Not Recovered/Not Resolved]
  - Emotional distress [Not Recovered/Not Resolved]
  - Hallucination [Unknown]
  - Rash [Unknown]
  - Depression [Not Recovered/Not Resolved]
  - Renal failure [Not Recovered/Not Resolved]
  - Dyspnoea [Unknown]
  - Fatigue [Unknown]
  - Quality of life decreased [Not Recovered/Not Resolved]
  - Acute kidney injury [Recovered/Resolved]

NARRATIVE: CASE EVENT DATE: 201206
